FAERS Safety Report 18620736 (Version 1)
Quarter: 2020Q4

REPORT INFORMATION
  Report Type: Spontaneous
  Country: GB (occurrence: GB)
  Receive Date: 20201216
  Receipt Date: 20201216
  Transmission Date: 20210114
  Serious: Yes (Hospitalization, Other)
  Sender: FDA-Public Use
  Company Number: GB-ADVANZ PHARMA-202012010730

PATIENT

DRUGS (11)
  1. PRIADEL [Suspect]
     Active Substance: LITHIUM
     Indication: DEPRESSION
     Dosage: 800 MG, QD, ORIGINALLY ON 200MG TWICE DAILY, THEN INCREASED TO 400MG TWICE DAILY, THEN REDUCED AGAIN
     Route: 048
  2. PRIADEL [Suspect]
     Active Substance: LITHIUM
     Dosage: 200 MG, BID, ORIGINALLY ON 200MG TWICE DAILY, THEN INCREASED TO 400MG TWICE DAILY, THEN REDUCED AGAI
     Route: 048
  3. SULPIRIDE [Concomitant]
     Active Substance: SULPIRIDE
  4. AMLODIPINE [Concomitant]
     Active Substance: AMLODIPINE BESYLATE
     Indication: HYPERTENSION
  5. ALENDRONATE SODIUM. [Concomitant]
     Active Substance: ALENDRONATE SODIUM
  6. PARACETAMOL [Concomitant]
     Active Substance: ACETAMINOPHEN
  7. DALTEPARIN [Concomitant]
     Active Substance: DALTEPARIN
  8. DIAZEPAM. [Concomitant]
     Active Substance: DIAZEPAM
  9. FERROUS SULFATE. [Concomitant]
     Active Substance: FERROUS SULFATE
  10. PREDNISOLONE. [Suspect]
     Active Substance: PREDNISOLONE
     Indication: RHEUMATOID ARTHRITIS
     Dates: start: 202011
  11. CLARITHROMYCIN. [Suspect]
     Active Substance: CLARITHROMYCIN
     Indication: ATYPICAL PNEUMONIA
     Dosage: PATIENT RECEIVED TWO DOSES
     Dates: start: 202011

REACTIONS (9)
  - Hypermagnesaemia [Recovering/Resolving]
  - Acute kidney injury [Unknown]
  - Bradycardia [Recovering/Resolving]
  - Pyrexia [Unknown]
  - Lower respiratory tract infection [Unknown]
  - Toxicity to various agents [Recovering/Resolving]
  - Dyspnoea [Unknown]
  - Underdose [Unknown]
  - Drug interaction [Unknown]

NARRATIVE: CASE EVENT DATE: 20201120
